FAERS Safety Report 7287703-9 (Version None)
Quarter: 2011Q1

REPORT INFORMATION
  Report Type: 
  Country: None (occurrence: None)
  Receive Date: 20110201
  Receipt Date: 20110124
  Transmission Date: 20110831
  Serious: Yes (Other)
  Sender: FDA-Public Use
  Company Number: JHP201100015

PATIENT
  Age: 22 Year
  Sex: Female

DRUGS (4)
  1. PITOCIN [Suspect]
     Indication: LABOUR INDUCTION
     Dates: start: 20110110, end: 20110110
  2. PITOCIN [Suspect]
     Indication: LABOUR INDUCTION
     Dates: start: 20110111
  3. CERVIDIL [Suspect]
     Indication: LABOUR INDUCTION
     Dosage: (10 MG, SINGLE VAGINAL) (10 MG, SINGLE, VAGINAL)
     Route: 067
     Dates: start: 20110110, end: 20110111
  4. CERVIDIL [Suspect]
     Indication: LABOUR INDUCTION
     Dosage: (10 MG, SINGLE VAGINAL) (10 MG, SINGLE, VAGINAL)
     Route: 067
     Dates: start: 20110109, end: 20110110

REACTIONS (6)
  - FATIGUE [None]
  - OEDEMA PERIPHERAL [None]
  - FOETAL DISTRESS SYNDROME [None]
  - DRUG EXPOSURE DURING PREGNANCY [None]
  - CAESAREAN SECTION [None]
  - VOMITING [None]
